FAERS Safety Report 8756421 (Version 2)
Quarter: 2013Q4

REPORT INFORMATION
  Report Type: Spontaneous
  Country: US (occurrence: US)
  Receive Date: 20120828
  Receipt Date: 20131101
  Transmission Date: 20140711
  Serious: No
  Sender: FDA-Public Use
  Company Number: US-009507513-1208USA008322

PATIENT
  Age: 58 Year
  Sex: Male
  Weight: 70.3 kg

DRUGS (4)
  1. PEGINTRON [Suspect]
     Dosage: 108 MICROGRAM, QW
     Route: 058
  2. REBETOL [Suspect]
     Route: 048
  3. IBUPROFEN [Concomitant]
     Route: 048
  4. TYLENOL [Concomitant]
     Route: 048

REACTIONS (3)
  - Injection site rash [Unknown]
  - Influenza like illness [Unknown]
  - Decreased appetite [Unknown]
